FAERS Safety Report 11704548 (Version 2)
Quarter: 2015Q4

REPORT INFORMATION
  Report Type: Spontaneous
  Country: US (occurrence: US)
  Receive Date: 20151106
  Receipt Date: 20151231
  Transmission Date: 20160304
  Serious: No
  Sender: FDA-Public Use
  Company Number: US-PFIZER INC-2015374694

PATIENT
  Age: 65 Year
  Sex: Female

DRUGS (3)
  1. IBRANCE [Suspect]
     Active Substance: PALBOCICLIB
     Dosage: 125 MG DAILY FOR 21 DAYS THEN 7 DAYS OFF FOR A 28 DAY CYCLE
     Route: 048
  2. FEMARA [Concomitant]
     Active Substance: LETROZOLE
     Dosage: UNK
  3. ALPRAZOLAM. [Concomitant]
     Active Substance: ALPRAZOLAM
     Dosage: UNK

REACTIONS (12)
  - Stomatitis [Unknown]
  - Dyspnoea [Unknown]
  - Depression [Unknown]
  - Nausea [Unknown]
  - Headache [Unknown]
  - Vomiting [Unknown]
  - Fatigue [Unknown]
  - Diarrhoea [Unknown]
  - Gait disturbance [Unknown]
  - Abdominal discomfort [Unknown]
  - Fall [Unknown]
  - Dizziness [Unknown]
